FAERS Safety Report 6348541-4 (Version None)
Quarter: 2009Q3

REPORT INFORMATION
  Report Type: 
  Country: None (occurrence: None)
  Receive Date: 20090911
  Receipt Date: 20090903
  Transmission Date: 20100115
  Serious: Yes (Death)
  Sender: FDA-Public Use
  Company Number: US-JNJFOC-20090902723

PATIENT
  Age: 64 Year
  Sex: Male
  Weight: 67.04 kg

DRUGS (4)
  1. FENTANYL [Suspect]
     Dosage: UPPER LEFT ABDOMEN, UPPER RIGHT CHEST,  RIGHT ABDOMEN
     Route: 062
  2. FENTANYL [Suspect]
     Indication: DRUG USE FOR UNKNOWN INDICATION
     Dosage: UPPER LEFT CHEST, LOWER LEFT CHEST, LOWER RIGHT CHEST
     Route: 062
  3. OXYCODONE [Suspect]
     Indication: DRUG USE FOR UNKNOWN INDICATION
     Route: 065
  4. DIPHENHYDRAMINE HCL [Suspect]
     Indication: DRUG USE FOR UNKNOWN INDICATION
     Route: 065

REACTIONS (3)
  - COMPLETED SUICIDE [None]
  - DRUG TOXICITY [None]
  - INTENTIONAL OVERDOSE [None]
